FAERS Safety Report 24411994 (Version 1)
Quarter: 2024Q4

REPORT INFORMATION
  Report Type: Spontaneous
  Country: US (occurrence: None)
  Receive Date: 20241008
  Receipt Date: 20241008
  Transmission Date: 20250114
  Serious: Yes (Hospitalization)
  Sender: INFORLIFE
  Company Number: US-INFO-20240306

PATIENT
  Age: 35 Year
  Sex: Male

DRUGS (1)
  1. LEVOFLOXACIN [Suspect]
     Active Substance: LEVOFLOXACIN
     Indication: Colitis

REACTIONS (2)
  - Haemolytic uraemic syndrome [Recovering/Resolving]
  - Off label use [Unknown]
